FAERS Safety Report 25697648 (Version 1)
Quarter: 2025Q3

REPORT INFORMATION
  Report Type: Report from Study
  Country: CA (occurrence: CA)
  Receive Date: 20250819
  Receipt Date: 20250819
  Transmission Date: 20251021
  Serious: Yes (Other)
  Sender: ABBVIE
  Company Number: CA-ABBVIE-6417685

PATIENT
  Sex: Female

DRUGS (4)
  1. ADALIMUMAB [Suspect]
     Active Substance: ADALIMUMAB
     Indication: Rheumatoid arthritis
     Dosage: THERAPY DURATION 78
     Route: 058
  2. RINVOQ [Suspect]
     Active Substance: UPADACITINIB
     Indication: Product used for unknown indication
     Route: 048
  3. METHOTREXATE [Concomitant]
     Active Substance: METHOTREXATE
     Indication: Product used for unknown indication
  4. TRUXIMA [Suspect]
     Active Substance: RITUXIMAB-ABBS
     Indication: Rheumatoid arthritis
     Route: 042

REACTIONS (6)
  - Anaphylactic reaction [Unknown]
  - Pain in extremity [Unknown]
  - Pain in jaw [Unknown]
  - Rash [Unknown]
  - Headache [Unknown]
  - Swelling face [Unknown]
